FAERS Safety Report 17948786 (Version 1)
Quarter: 2020Q2

REPORT INFORMATION
  Report Type: Spontaneous
  Country: JP (occurrence: JP)
  Receive Date: 20200626
  Receipt Date: 20200626
  Transmission Date: 20200714
  Serious: Yes (Hospitalization)
  Sender: FDA-Public Use
  Company Number: JP-AMGEN-JPNSP2020101152

PATIENT
  Age: 53 Year
  Sex: Male
  Weight: 82.5 kg

DRUGS (2)
  1. PARSABIV [Suspect]
     Active Substance: ETELCALCETIDE HYDROCHLORIDE
     Indication: HYPERPARATHYROIDISM SECONDARY
     Dosage: 10 MG, Q56H
     Route: 010
     Dates: start: 20190109
  2. OXAROL [Concomitant]
     Active Substance: MAXACALCITOL
     Dosage: 2.5 MICROGRAM, 3 TIMES/WK
     Route: 065
     Dates: start: 20171206

REACTIONS (1)
  - Heat illness [Recovering/Resolving]

NARRATIVE: CASE EVENT DATE: 20200605
